FAERS Safety Report 9504226 (Version 1)
Quarter: 2013Q3

REPORT INFORMATION
  Report Type: Spontaneous
  Country: CR (occurrence: CR)
  Receive Date: 20130906
  Receipt Date: 20130906
  Transmission Date: 20140515
  Serious: Yes (Hospitalization)
  Sender: FDA-Public Use
  Company Number: CR-GLAXOSMITHKLINE-A1040458A

PATIENT
  Age: 59 Year
  Sex: Male

DRUGS (1)
  1. WELLBUTRIN [Suspect]
     Indication: MAJOR DEPRESSION
     Route: 065

REACTIONS (5)
  - Depressed level of consciousness [Unknown]
  - Dysgeusia [Unknown]
  - Speech disorder [Unknown]
  - Malaise [Unknown]
  - Weight decreased [Unknown]
